FAERS Safety Report 26209930 (Version 1)
Quarter: 2025Q4

REPORT INFORMATION
  Report Type: Spontaneous
  Country: CN (occurrence: CN)
  Receive Date: 20251229
  Receipt Date: 20251229
  Transmission Date: 20260118
  Serious: Yes (Other)
  Sender: FRESENIUS KABI
  Company Number: CN-FreseniusKabi-FK202517757

PATIENT
  Age: 72 Year
  Sex: Male
  Weight: 72 kg

DRUGS (3)
  1. PROPOFOL [Suspect]
     Active Substance: PROPOFOL
     Indication: Anaesthesia
     Dosage: FOA-INJECTABLE EMULSION
     Dates: start: 20251217, end: 20251217
  2. PROPOFOL [Suspect]
     Active Substance: PROPOFOL
     Indication: Ureteric calculus removal
  3. CIPEPOFOL [Suspect]
     Active Substance: CIPEPOFOL
     Indication: Anaesthesia
     Dosage: FOA-INJECTION
     Dates: start: 20251217, end: 20251217

REACTIONS (1)
  - Anaphylactic shock [Recovering/Resolving]

NARRATIVE: CASE EVENT DATE: 20251217
